FAERS Safety Report 7378982-8 (Version None)
Quarter: 2011Q1

REPORT INFORMATION
  Report Type: 
  Country: None (occurrence: None)
  Receive Date: 20110328
  Receipt Date: 20110315
  Transmission Date: 20110831
  Serious: Yes (Hospitalization)
  Sender: FDA-Public Use
  Company Number: US-ELI_LILLY_AND_COMPANY-US201103004937

PATIENT
  Sex: Female

DRUGS (11)
  1. CYMBALTA [Suspect]
     Dosage: 1 D/F, UNK
  2. VITAMIN D [Concomitant]
     Dosage: 1 D/F, UNK
  3. CLINDAMYCIN [Concomitant]
     Dosage: 1 D/F, UNK
  4. PAROXETINE HYDROCHLORIDE [Concomitant]
     Dosage: 1 D/F, UNK
  5. EVISTA [Suspect]
     Indication: OSTEOPOROSIS
     Dosage: 60 MG, DAILY (1/D)
  6. BONIVA [Concomitant]
     Dosage: 1 D/F, UNK
  7. FORTEO [Suspect]
     Indication: OSTEOPOROSIS
     Dosage: 20 UG, DAILY (1/D)
  8. LEXAPRO [Concomitant]
     Dosage: 1 D/F, UNK
  9. NEXIUM [Concomitant]
     Dosage: 1 D/F, UNK
  10. CENTRUM SILVER [Concomitant]
     Dosage: 1 D/F, UNK
  11. SYNTHROID [Concomitant]
     Dosage: 1 D/F, UNK

REACTIONS (8)
  - LOWER LIMB FRACTURE [None]
  - DRUG INEFFECTIVE [None]
  - SPINAL FRACTURE [None]
  - MACULAR DEGENERATION [None]
  - FEELING ABNORMAL [None]
  - FALL [None]
  - HEADACHE [None]
  - PATELLA FRACTURE [None]
